FAERS Safety Report 4317980-5 (Version None)
Quarter: 2004Q1

REPORT INFORMATION
  Report Type: 
  Country: None (occurrence: None)
  Receive Date: 20040316
  Receipt Date: 20040304
  Transmission Date: 20041129
  Serious: Yes (Hospitalization, Other)
  Sender: FDA-Public Use
  Company Number: PHBS2004TW03130

PATIENT
  Age: 34 Year
  Sex: Female

DRUGS (9)
  1. GLEEVEC [Suspect]
     Indication: CHRONIC MYELOID LEUKAEMIA
     Dosage: 600 MG/D
     Dates: start: 20010901
  2. CYCLOSPORINE [Suspect]
     Indication: BONE MARROW TRANSPLANT
     Dates: start: 19990101
  3. CYCLOPHOSPHAMIDE [Concomitant]
     Indication: BONE MARROW TRANSPLANT
  4. ANTITHYMOCYTE IMMUNOGLOBULIN [Concomitant]
     Indication: BONE MARROW TRANSPLANT
  5. IRRADIATION [Concomitant]
     Indication: BONE MARROW TRANSPLANT
  6. METHOTREXATE [Concomitant]
     Indication: BONE MARROW TRANSPLANT
  7. SULFAMETHOXAZOLE + TRIMETHOPRIM [Concomitant]
     Dosage: 20 MG/KG/D, TWICE WEEKLY
  8. NYSTATIN [Concomitant]
     Dosage: 106 IU, QD
  9. INTERFERON ALFA [Concomitant]
     Dates: start: 20011001, end: 20020401

REACTIONS (14)
  - CANDIDIASIS [None]
  - CYTOMEGALOVIRUS INFECTION [None]
  - DIARRHOEA [None]
  - DYSPNOEA [None]
  - GRAFT VERSUS HOST DISEASE [None]
  - LEUKAEMIA RECURRENT [None]
  - LEUKOCYTOSIS [None]
  - NOCARDIOSIS [None]
  - OBLITERATIVE BRONCHIOLITIS [None]
  - PRODUCTIVE COUGH [None]
  - PSEUDOMONAS INFECTION [None]
  - PYREXIA [None]
  - RASH [None]
  - STAPHYLOCOCCAL BACTERAEMIA [None]
